FAERS Safety Report 18628969 (Version 1)
Quarter: 2020Q4

REPORT INFORMATION
  Report Type: Spontaneous
  Country: US (occurrence: US)
  Receive Date: 20201217
  Receipt Date: 20201217
  Transmission Date: 20210114
  Serious: Yes (Hospitalization)
  Sender: FDA-Public Use
  Company Number: None

PATIENT
  Age: 70 Year
  Sex: Female

DRUGS (10)
  1. GRAPESEED XTRA CAPSULES [Concomitant]
     Dates: start: 20201120
  2. TURMERIC CAPSULES [Concomitant]
     Dates: start: 20201120
  3. PIQRAY [Suspect]
     Active Substance: ALPELISIB
     Indication: BREAST CANCER
     Route: 048
     Dates: start: 20201121, end: 20201201
  4. CLARITIN [Concomitant]
     Active Substance: LORATADINE
     Dates: start: 20201101
  5. MAGNESIUM GLUCONATE [Concomitant]
     Active Substance: MAGNESIUM GLUCONATE
     Dates: start: 20201120
  6. PROBIOTIC CAPSULES [Concomitant]
     Active Substance: PROBIOTICS NOS
     Dates: start: 20201120
  7. ANASTRAZOLE 1MG [Concomitant]
     Active Substance: ANASTROZOLE
     Dates: start: 20191210
  8. GLYCOLIC ACID 25GM [Concomitant]
     Dates: start: 20201120
  9. OMEGA-3 1000MG CAPSULSES [Concomitant]
     Dates: start: 20201120
  10. VITAMIN D3 5000 INTERNATIONAL UNITS [Concomitant]
     Dates: start: 20201120

REACTIONS (5)
  - Fatigue [None]
  - Haemoglobin decreased [None]
  - Hyperglycaemia [None]
  - Rash [None]
  - Paraesthesia [None]

NARRATIVE: CASE EVENT DATE: 20201201
